FAERS Safety Report 4738328-8 (Version None)
Quarter: 2005Q3

REPORT INFORMATION
  Report Type: 
  Country: None (occurrence: None)
  Receive Date: 20050809
  Receipt Date: 20050701
  Transmission Date: 20060218
  Serious: Yes (Hospitalization)
  Sender: FDA-Public Use
  Company Number: PHBS2005JP09418

PATIENT
  Age: 74 Year
  Sex: Male

DRUGS (8)
  1. FASTIC [Suspect]
     Indication: DIABETES MELLITUS
     Dosage: 90 MG, QD
     Route: 048
     Dates: start: 20050511, end: 20050607
  2. BLOPRESS [Concomitant]
     Indication: HYPERTENSION
     Dosage: 8 MG, UNK
     Dates: start: 20021225, end: 20050607
  3. CALBLOCK [Concomitant]
     Indication: HYPERTENSION
     Dosage: 16 MG, UNK
     Dates: start: 20050202, end: 20050607
  4. ALMARL [Concomitant]
     Indication: HYPERTENSION
     Dosage: 20 MG, UNK
     Dates: start: 19971118, end: 20050607
  5. LIPITOR [Concomitant]
     Indication: HYPERLIPIDAEMIA
     Dosage: 10 MG, UNK
     Dates: start: 20040427, end: 20050607
  6. ZADITEN [Concomitant]
     Indication: DERMATITIS EXFOLIATIVE
     Dosage: 4.14 MG, UNK
     Dates: start: 19970129, end: 20050607
  7. ATARAX [Concomitant]
     Indication: DERMATITIS EXFOLIATIVE
     Dosage: 25 MG, UNK
     Dates: start: 19970129, end: 20050607
  8. RHYTHMY [Concomitant]
     Indication: INSOMNIA
     Dosage: 2 MG, UNK
     Dates: start: 19970129, end: 20050607

REACTIONS (11)
  - BLOOD ANTIDIURETIC HORMONE INCREASED [None]
  - BLOOD OSMOLARITY DECREASED [None]
  - CONVULSION [None]
  - DEPRESSED LEVEL OF CONSCIOUSNESS [None]
  - DYSARTHRIA [None]
  - HALLUCINATION [None]
  - HYPONATRAEMIA [None]
  - INAPPROPRIATE ANTIDIURETIC HORMONE SECRETION [None]
  - LYMPHOMA [None]
  - URINE OSMOLARITY INCREASED [None]
  - VASCULITIS [None]
